FAERS Safety Report 15592402 (Version 2)
Quarter: 2019Q1

REPORT INFORMATION
  Report Type: Spontaneous
  Country: US (occurrence: US)
  Receive Date: 20181106
  Receipt Date: 20190315
  Transmission Date: 20190417
  Serious: Yes (Hospitalization, Other)
  Sender: FDA-Public Use
  Company Number: US-PFIZER INC-2018444234

PATIENT
  Age: 58 Year
  Sex: Female
  Weight: 84 kg

DRUGS (10)
  1. WARFARIN [Concomitant]
     Active Substance: WARFARIN
     Indication: ANTICOAGULANT THERAPY
     Dosage: 15 MG, 1X/DAY
     Dates: start: 1989
  2. AMIODARONE HCL [Suspect]
     Active Substance: AMIODARONE HYDROCHLORIDE
     Indication: CARDIAC FLUTTER
  3. AMIODARONE HCL [Suspect]
     Active Substance: AMIODARONE HYDROCHLORIDE
     Indication: ARRHYTHMIA
  4. METOPROLOL. [Concomitant]
     Active Substance: METOPROLOL
     Indication: HEART RATE ABNORMAL
     Dosage: 50 MG, 2X/DAY
  5. DOFETILIDE. [Concomitant]
     Active Substance: DOFETILIDE
     Dosage: UNK
     Dates: start: 201709
  6. CLOPIDOGREL [Concomitant]
     Active Substance: CLOPIDOGREL BISULFATE
     Indication: CARDIAC DISORDER
     Dosage: 75 MG, UNK
     Dates: start: 201712
  7. METOPROLOL. [Concomitant]
     Active Substance: METOPROLOL
     Dosage: UNK
     Dates: start: 201709
  8. AMIODARONE HCL [Suspect]
     Active Substance: AMIODARONE HYDROCHLORIDE
     Indication: HEART RATE INCREASED
  9. AMOXICILLIN. [Concomitant]
     Active Substance: AMOXICILLIN
     Dosage: 500 MG, UNK
     Dates: start: 1989
  10. AMIODARONE HCL [Suspect]
     Active Substance: AMIODARONE HYDROCHLORIDE
     Indication: CARDIAC FIBRILLATION
     Dosage: UNK, 1X/DAY
     Route: 048
     Dates: start: 201306, end: 201501

REACTIONS (1)
  - Blindness unilateral [Not Recovered/Not Resolved]
